FAERS Safety Report 10034783 (Version 1)
Quarter: 2014Q1

REPORT INFORMATION
  Report Type: Report from Study
  Country: JP (occurrence: JP)
  Receive Date: 20140325
  Receipt Date: 20140325
  Transmission Date: 20141002
  Serious: Yes (Other)
  Sender: FDA-Public Use
  Company Number: JP-UCBSA-115413

PATIENT
  Age: 48 Year
  Sex: Female
  Weight: 75 kg

DRUGS (12)
  1. CIMZIA [Suspect]
     Indication: RHEUMATOID ARTHRITIS
     Dosage: 200MG SYRINGE
     Route: 058
     Dates: start: 20130610, end: 20130708
  2. RHEUMATREX [Suspect]
     Indication: RHEUMATOID ARTHRITIS
     Route: 048
  3. LOXONIN [Concomitant]
     Dosage: 180MG DAILY
     Route: 048
  4. PREDONINE [Concomitant]
     Dosage: 12.5MG DAILY
     Route: 048
     Dates: end: 20131018
  5. PREDONINE [Concomitant]
     Dosage: 10MG DAILY
     Route: 048
     Dates: start: 20131019, end: 20131101
  6. PREDONINE [Concomitant]
     Dosage: 9MG DAILY
     Route: 048
     Dates: start: 20131102
  7. OMEPRAL [Concomitant]
     Dosage: 20MG DAILY
     Route: 048
  8. SELBEX [Concomitant]
     Dosage: 150MG DAILY
     Route: 048
  9. FOLIAMIN [Concomitant]
     Route: 048
  10. ASPARA-CA [Concomitant]
     Dosage: 400MG DAILY
     Route: 048
  11. GLAKAY [Concomitant]
     Dosage: 30MG DAILY
     Route: 048
  12. BISOLVON [Concomitant]
     Dosage: 12MG DAILY
     Route: 048

REACTIONS (1)
  - Herpes zoster [Recovering/Resolving]
